FAERS Safety Report 4597015-X (Version None)
Quarter: 2005Q1

REPORT INFORMATION
  Report Type: 
  Country: None (occurrence: None)
  Receive Date: 20050228
  Receipt Date: 20050211
  Transmission Date: 20050727
  Serious: Yes (Hospitalization)
  Sender: FDA-Public Use
  Company Number: 2005BI000532

PATIENT
  Age: 44 Year
  Sex: Female

DRUGS (12)
  1. AVONEX [Suspect]
     Indication: MULTIPLE SCLEROSIS
     Dosage: 30 UG; QW; IM
     Route: 030
     Dates: start: 20000809
  2. AVONEX [Suspect]
     Indication: MULTIPLE SCLEROSIS
     Dosage: 30 UG; QW; IM
     Route: 030
  3. LEVAQUIN [Concomitant]
  4. CLINDAMYCIN [Concomitant]
  5. ADVAIF DISKUS [Concomitant]
  6. PEPCID [Concomitant]
  7. ALBUTEROL [Concomitant]
  8. ATROVENT [Concomitant]
  9. PREDNISONE [Concomitant]
  10. TIGAN [Concomitant]
  11. VICODIN [Concomitant]
  12. COLACE [Concomitant]

REACTIONS (5)
  - ATELECTASIS [None]
  - PNEUMONIA MYCOPLASMAL [None]
  - PSEUDARTHROSIS [None]
  - RESPIRATORY FAILURE [None]
  - SPINAL OSTEOARTHRITIS [None]
